FAERS Safety Report 5320215-8 (Version None)
Quarter: 2007Q2

REPORT INFORMATION
  Report Type: 
  Country: None (occurrence: None)
  Receive Date: 20070509
  Receipt Date: 20070508
  Transmission Date: 20071010
  Serious: Yes (Other)
  Sender: FDA-Public Use
  Company Number: A0650428A

PATIENT
  Sex: Female

DRUGS (3)
  1. AVANDAMET [Suspect]
     Dosage: 1MG TWICE PER DAY
     Route: 048
     Dates: start: 20070501
  2. PHENTERMINE HYDROCHLORIDE [Concomitant]
  3. ATENOLOL [Concomitant]

REACTIONS (2)
  - DIARRHOEA [None]
  - VISUAL ACUITY REDUCED [None]
